FAERS Safety Report 5359904-8 (Version None)
Quarter: 2007Q3

REPORT INFORMATION
  Report Type: 
  Country: None (occurrence: None)
  Receive Date: 20070531
  Receipt Date: 20060823
  Transmission Date: 20080115
  Serious: Yes (Hospitalization)
  Sender: FDA-Public Use
  Company Number: 008407

PATIENT
  Sex: Female

DRUGS (1)
  1. MIRCETTE [Suspect]
     Indication: UTERINE LEIOMYOMA
     Dosage: ORAL
     Route: 048

REACTIONS (5)
  - DYSPNOEA [None]
  - HEADACHE [None]
  - MENSTRUAL DISORDER [None]
  - PAIN IN EXTREMITY [None]
  - PULMONARY EMBOLISM [None]
